FAERS Safety Report 17483169 (Version 7)
Quarter: 2021Q2

REPORT INFORMATION
  Report Type: Spontaneous
  Country: US (occurrence: US)
  Receive Date: 20200302
  Receipt Date: 20210624
  Transmission Date: 20210716
  Serious: Yes (Other)
  Sender: FDA-Public Use
  Company Number: US-PFIZER INC-2020089216

PATIENT
  Age: 57 Year
  Sex: Female

DRUGS (2)
  1. XELJANZ XR [Suspect]
     Active Substance: TOFACITINIB CITRATE
     Dosage: 11 MG
     Dates: start: 20210312
  2. XELJANZ XR [Suspect]
     Active Substance: TOFACITINIB CITRATE
     Dosage: 11 MG
     Dates: start: 20201031

REACTIONS (13)
  - Nasal congestion [Unknown]
  - Ear infection [Unknown]
  - Respiratory symptom [Unknown]
  - Dizziness [Unknown]
  - Eustachian tube dysfunction [Recovered/Resolved]
  - Colitis [Unknown]
  - Rhinorrhoea [Unknown]
  - Staphylococcal infection [Unknown]
  - Drug ineffective [Unknown]
  - Anxiety [Unknown]
  - Oropharyngeal pain [Unknown]
  - Loss of personal independence in daily activities [Unknown]
  - Fungal infection [Unknown]
